FAERS Safety Report 19477331 (Version 1)
Quarter: 2021Q2

REPORT INFORMATION
  Report Type: Spontaneous
  Country: US (occurrence: US)
  Receive Date: 20210630
  Receipt Date: 20210630
  Transmission Date: 20210717
  Serious: Yes (Hospitalization)
  Sender: FDA-Public Use
  Company Number: None

PATIENT
  Sex: Male

DRUGS (10)
  1. LIOTHYRONINE [Concomitant]
     Active Substance: LIOTHYRONINE
  2. GILENYA [Suspect]
     Active Substance: FINGOLIMOD HYDROCHLORIDE
     Indication: MULTIPLE SCLEROSIS
     Route: 048
     Dates: start: 20150822
  3. ASPIRIN LOW DOSE [Concomitant]
     Active Substance: ASPIRIN
  4. SYNTHROID [Concomitant]
     Active Substance: LEVOTHYROXINE SODIUM
  5. MONTELUKAST [Concomitant]
     Active Substance: MONTELUKAST SODIUM
  6. OMEPRAZOLE. [Concomitant]
     Active Substance: OMEPRAZOLE
  7. LORAZEPAM. [Concomitant]
     Active Substance: LORAZEPAM
  8. NUVIGIL [Concomitant]
     Active Substance: ARMODAFINIL
  9. METFORMIN [Concomitant]
     Active Substance: METFORMIN HYDROCHLORIDE
  10. ZYRTEC [Concomitant]
     Active Substance: CETIRIZINE HYDROCHLORIDE

REACTIONS (3)
  - Gait disturbance [None]
  - Fatigue [None]
  - Loss of consciousness [None]
